FAERS Safety Report 5487069-0 (Version None)
Quarter: 2007Q3

REPORT INFORMATION
  Report Type: 
  Country: None (occurrence: None)
  Receive Date: 20070925
  Receipt Date: 20070703
  Transmission Date: 20080115
  Serious: No
  Sender: FDA-Public Use
  Company Number: 2007US001594

PATIENT
  Sex: Male

DRUGS (2)
  1. VESICARE [Suspect]
     Indication: POLLAKIURIA
     Dosage: ORAL
     Route: 048
  2. AVODART [Concomitant]

REACTIONS (1)
  - DRUG INEFFECTIVE [None]
